FAERS Safety Report 8743575 (Version 2)
Quarter: 2012Q4

REPORT INFORMATION
  Report Type: 
  Country: US (occurrence: US)
  Receive Date: 20120824
  Receipt Date: 20120911
  Transmission Date: 20130627
  Serious: No
  Sender: FDA-Public Use
  Company Number: US-BAYER-2012-082487

PATIENT

DRUGS (1)
  1. ULTRAVIST [Suspect]
     Indication: SCAN
     Dosage: UNK
     Dates: start: 20120807, end: 20120807

REACTIONS (1)
  - Adverse reaction [None]
